FAERS Safety Report 5696173-3 (Version None)
Quarter: 2008Q2

REPORT INFORMATION
  Report Type: 
  Country: None (occurrence: None)
  Receive Date: 20080407
  Receipt Date: 20080328
  Transmission Date: 20081010
  Serious: Yes (Disabling, Congenital Anomaly)
  Sender: FDA-Public Use
  Company Number: GB-AVENTIS-200715740GDDC

PATIENT
  Sex: Female
  Weight: 2.5 kg

DRUGS (2)
  1. TELFAST                            /01314201/ [Suspect]
     Indication: ANGIOEDEMA
     Route: 064
     Dates: start: 20010401, end: 20030301
  2. MONTELUKAST SODIUM [Concomitant]
     Indication: ANGIOEDEMA
     Route: 064
     Dates: start: 20010401, end: 20030301

REACTIONS (3)
  - DRUG EXPOSURE DURING PREGNANCY [None]
  - HIP DYSPLASIA [None]
  - VARICOSE VEIN [None]
